FAERS Safety Report 11050448 (Version 1)
Quarter: 2015Q2

REPORT INFORMATION
  Report Type: Spontaneous
  Country: US (occurrence: None)
  Receive Date: 20150420
  Receipt Date: 20150420
  Transmission Date: 20150821
  Serious: No
  Sender: FDA-Public Use
  Company Number: None

PATIENT
  Age: 54 Year
  Sex: Female
  Weight: 73.94 kg

DRUGS (7)
  1. BYDUREON [Suspect]
     Active Substance: EXENATIDE
     Indication: TYPE 2 DIABETES MELLITUS
     Dosage: 2MG INJECTION, WEEKLY, GIVEN INTO/UNDER THE SKIN
     Dates: start: 20150402, end: 20150416
  2. POTASSIUM [Concomitant]
     Active Substance: POTASSIUM
  3. TRIAMTERENE. [Concomitant]
     Active Substance: TRIAMTERENE
  4. E [Concomitant]
  5. COQ10 [Suspect]
     Active Substance: UBIDECARENONE
  6. OMEPRAZOLE. [Concomitant]
     Active Substance: OMEPRAZOLE
  7. SIMVASTATIN. [Concomitant]
     Active Substance: SIMVASTATIN

REACTIONS (13)
  - Abnormal loss of weight [None]
  - Fatigue [None]
  - Gastrooesophageal reflux disease [None]
  - Quality of life decreased [None]
  - Activities of daily living impaired [None]
  - Dehydration [None]
  - Dyspepsia [None]
  - Nausea [None]
  - Diarrhoea [None]
  - Insomnia [None]
  - Lethargy [None]
  - Weight decreased [None]
  - Influenza like illness [None]

NARRATIVE: CASE EVENT DATE: 20150416
